FAERS Safety Report 9919302 (Version 1)
Quarter: 2014Q1

REPORT INFORMATION
  Report Type: Spontaneous
  Country: GR (occurrence: GR)
  Receive Date: 20140224
  Receipt Date: 20140224
  Transmission Date: 20141002
  Serious: Yes (Hospitalization)
  Sender: FDA-Public Use
  Company Number: GR-NOVOPROD-400499

PATIENT
  Sex: Female
  Weight: 3.41 kg

DRUGS (2)
  1. PROTAPHANE PENFILL [Suspect]
     Indication: GESTATIONAL DIABETES
     Dosage: 8 IU, QD
     Route: 064
  2. PROTAPHANE PENFILL [Suspect]
     Indication: GESTATIONAL DIABETES
     Dosage: 8 IU, QD
     Route: 064

REACTIONS (2)
  - Pulmonary hypertension [Recovered/Resolved]
  - Foetal exposure during pregnancy [Recovered/Resolved]
